FAERS Safety Report 4390407-3 (Version None)
Quarter: 2004Q2

REPORT INFORMATION
  Report Type: 
  Country: None (occurrence: None)
  Receive Date: 20040630
  Receipt Date: 20040623
  Transmission Date: 20050107
  Serious: Yes (Other)
  Sender: FDA-Public Use
  Company Number: 200411462BCC

PATIENT
  Age: 67 Year
  Sex: Female
  Weight: 61.2356 kg

DRUGS (5)
  1. ALKA-SELTZER PLUS COLD [Suspect]
     Indication: NASOPHARYNGITIS
     Dosage: PRN, ORAL
     Route: 048
  2. FOLIC ACID [Concomitant]
  3. CALCIUM [Concomitant]
  4. VITAMIN C [Concomitant]
  5. VITAMIN E [Concomitant]

REACTIONS (6)
  - BLOOD CHOLESTEROL INCREASED [None]
  - COGNITIVE DISORDER [None]
  - HEADACHE [None]
  - HYPERTENSION [None]
  - MEMORY IMPAIRMENT [None]
  - TRANSIENT ISCHAEMIC ATTACK [None]
